FAERS Safety Report 7244884-0 (Version None)
Quarter: 2011Q1

REPORT INFORMATION
  Report Type: 
  Country: None (occurrence: None)
  Receive Date: 20110126
  Receipt Date: 20110117
  Transmission Date: 20110831
  Serious: Yes (Hospitalization, Other)
  Sender: FDA-Public Use
  Company Number: US-TEVA-263523USA

PATIENT
  Sex: Male

DRUGS (4)
  1. TESTOSTERONE [Concomitant]
  2. TAMOXIFEN [Concomitant]
  3. CLARAVIS [Suspect]
     Route: 048
  4. METHYLPHENIDATE [Concomitant]

REACTIONS (2)
  - SUICIDAL IDEATION [None]
  - DEPRESSION [None]
